FAERS Safety Report 18295443 (Version 1)
Quarter: 2020Q3

REPORT INFORMATION
  Report Type: Spontaneous
  Country: FR (occurrence: FR)
  Receive Date: 20200922
  Receipt Date: 20200922
  Transmission Date: 20201103
  Serious: Yes (Other)
  Sender: FDA-Public Use
  Company Number: FR-ROCHE-2682495

PATIENT
  Age: 25 Year
  Sex: Female
  Weight: 95 kg

DRUGS (1)
  1. ROACTEMRA [Suspect]
     Active Substance: TOCILIZUMAB
     Indication: UVEITIS
     Route: 041
     Dates: start: 20200518, end: 20200715

REACTIONS (2)
  - Blood bilirubin unconjugated increased [Unknown]
  - Haemolysis [Unknown]

NARRATIVE: CASE EVENT DATE: 20200811
